FAERS Safety Report 4367342-X (Version None)
Quarter: 2004Q2

REPORT INFORMATION
  Report Type: 
  Country: None (occurrence: None)
  Receive Date: 20040528
  Receipt Date: 20040528
  Transmission Date: 20050107
  Serious: Yes (Hospitalization)
  Sender: FDA-Public Use
  Company Number: None

PATIENT
  Age: 62 Year
  Sex: Female
  Weight: 80.2867 kg

DRUGS (16)
  1. 13-CIS-RETINOIC ACID [Suspect]
     Indication: OVARIAN CANCER
     Dosage: 90 MG PO (D1-4)
     Route: 048
     Dates: start: 20040323, end: 20040324
  2. 13-CIS-RETINOIC ACID [Suspect]
     Indication: UTERINE CANCER
     Dosage: 90 MG PO (D1-4)
     Route: 048
     Dates: start: 20040323, end: 20040324
  3. ALPH INTEREON [Suspect]
     Indication: OVARIAN CANCER
     Dosage: 12 MU SC (D1-4)
     Route: 058
     Dates: start: 20040323, end: 20040324
  4. ALPH INTEREON [Suspect]
     Indication: UTERINE CANCER
     Dosage: 12 MU SC (D1-4)
     Route: 058
     Dates: start: 20040323, end: 20040324
  5. TAXOTERE [Suspect]
     Indication: OVARIAN CANCER
     Dosage: 98 MG IV (D2)
     Route: 042
     Dates: start: 20040324
  6. TAXOTERE [Suspect]
     Indication: UTERINE CANCER
     Dosage: 98 MG IV (D2)
     Route: 042
     Dates: start: 20040324
  7. ESTRAMUSTINE [Suspect]
     Indication: OVARIAN CANCER
     Dosage: 840 MG PO TID
     Route: 048
     Dates: start: 20040323, end: 20040324
  8. ESTRAMUSTINE [Suspect]
     Indication: UTERINE CANCER
     Dosage: 840 MG PO TID
     Route: 048
     Dates: start: 20040323, end: 20040324
  9. ZOLOFT [Concomitant]
     Indication: OVARIAN CANCER
  10. ZOLOFT [Concomitant]
     Indication: UTERINE CANCER
  11. ZOFRAN [Concomitant]
     Indication: OVARIAN CANCER
  12. ZOFRAN [Concomitant]
     Indication: UTERINE CANCER
  13. OXYCONTIN [Concomitant]
     Indication: OVARIAN CANCER
  14. OXYCONTIN [Concomitant]
     Indication: UTERINE CANCER
  15. OXYCODONE [Concomitant]
  16. NEXIUM [Concomitant]

REACTIONS (8)
  - CEREBRAL INFARCTION [None]
  - CONSTIPATION [None]
  - FLATULENCE [None]
  - HAEMOGLOBIN DECREASED [None]
  - MARKEDLY REDUCED DIETARY INTAKE [None]
  - NAUSEA [None]
  - PYREXIA [None]
  - VOMITING [None]
